FAERS Safety Report 9738762 (Version 1)
Quarter: 2013Q4

REPORT INFORMATION
  Report Type: Report from Study
  Country: DE (occurrence: DE)
  Receive Date: 20131209
  Receipt Date: 20131209
  Transmission Date: 20140711
  Serious: Yes (Other)
  Sender: FDA-Public Use
  Company Number: DE-JNJFOC-20131201234

PATIENT
  Sex: 0

DRUGS (1)
  1. SIMPONI [Suspect]
     Indication: RHEUMATIC DISORDER
     Route: 058

REACTIONS (1)
  - Neoplasm malignant [Unknown]
